FAERS Safety Report 8444670-X (Version None)
Quarter: 2012Q2

REPORT INFORMATION
  Report Type: 
  Country: None (occurrence: None)
  Receive Date: 20120618
  Receipt Date: 20120604
  Transmission Date: 20120825
  Serious: Yes (Other)
  Sender: FDA-Public Use
  Company Number: BR-AMGEN-BRASP2012035278

PATIENT
  Age: 56 Year
  Sex: Female

DRUGS (6)
  1. METHOTREXATE [Concomitant]
     Dosage: 2.5 MG, ONCE WEEKLY
  2. FOLIC ACID [Concomitant]
     Dosage: TWICE WEEKLY
  3. ENBREL [Suspect]
     Indication: RHEUMATOID ARTHRITIS
     Dosage: 50 MG, WEEKLY
     Route: 058
     Dates: start: 20111201
  4. VITAMIN D [Concomitant]
     Dosage: UNK
  5. ENBREL [Suspect]
     Indication: PSORIASIS
  6. ENALAPRIL [Concomitant]
     Dosage: 10 MG, 1X/DAY

REACTIONS (4)
  - ADENOCARCINOMA [None]
  - HAEMATOCHEZIA [None]
  - THYROID NEOPLASM [None]
  - PAIN [None]
